FAERS Safety Report 18002409 (Version 1)
Quarter: 2020Q3

REPORT INFORMATION
  Report Type: Spontaneous
  Country: FR (occurrence: FR)
  Receive Date: 20200710
  Receipt Date: 20200710
  Transmission Date: 20201103
  Serious: Yes (Death, Other)
  Sender: FDA-Public Use
  Company Number: FR-CELLTRION INC.-2020FR024007

PATIENT

DRUGS (2)
  1. RITUXIMAB (UNKNOWN) [Suspect]
     Active Substance: RITUXIMAB
     Dosage: 375 MG/M2 WERE POSSIBLE AFTER DAY 12 (IN CASE OF INSUFFICIENT EFFICACY)
     Route: 042
  2. RITUXIMAB (UNKNOWN) [Suspect]
     Active Substance: RITUXIMAB
     Indication: TRANSPLANT REJECTION
     Dosage: 375 MG/M2 AT DAY 5
     Route: 042

REACTIONS (14)
  - Off label use [Unknown]
  - Tuberculosis [Fatal]
  - Basal cell carcinoma [Unknown]
  - Renal cancer recurrent [Unknown]
  - Malignant melanoma [Fatal]
  - Prostate cancer [Unknown]
  - Cytomegalovirus infection [Unknown]
  - Skin cancer [Unknown]
  - Urinary tract infection [Unknown]
  - Squamous cell carcinoma [Unknown]
  - Bacterial infection [Unknown]
  - BK virus infection [Unknown]
  - Drug ineffective for unapproved indication [Unknown]
  - Pyelonephritis [Unknown]
